FAERS Safety Report 14263259 (Version 1)
Quarter: 2017Q4

REPORT INFORMATION
  Report Type: Spontaneous
  Country: ME (occurrence: ME)
  Receive Date: 20171208
  Receipt Date: 20171208
  Transmission Date: 20180321
  Serious: Yes (Other)
  Sender: FDA-Public Use
  Company Number: ME-BAYER-2017-229796

PATIENT
  Age: 62 Year
  Sex: Female

DRUGS (4)
  1. NEXAVAR [Suspect]
     Active Substance: SORAFENIB
     Indication: HEPATOCELLULAR CARCINOMA
     Dosage: DOSE AGAIN INCREASED
  2. 5-FU [Concomitant]
     Active Substance: FLUOROURACIL
  3. NEXAVAR [Suspect]
     Active Substance: SORAFENIB
     Indication: HEPATOCELLULAR CARCINOMA
     Route: 048
  4. NEXAVAR [Suspect]
     Active Substance: SORAFENIB
     Indication: HEPATOCELLULAR CARCINOMA
     Dosage: DOSE REDUCED

REACTIONS (7)
  - Alpha 1 foetoprotein increased [None]
  - Palmoplantar keratoderma [None]
  - Diarrhoea [None]
  - Hepatocellular carcinoma [None]
  - Palmar-plantar erythrodysaesthesia syndrome [None]
  - Blood pressure increased [None]
  - Asthenia [Not Recovered/Not Resolved]
